FAERS Safety Report 25478389 (Version 1)
Quarter: 2025Q2

REPORT INFORMATION
  Report Type: Spontaneous
  Country: GB (occurrence: GB)
  Receive Date: 20250625
  Receipt Date: 20250625
  Transmission Date: 20250717
  Serious: Yes (Other)
  Sender: MYLAN
  Company Number: GB-MHRA-TPP18702454C4665498YC1750344170776

PATIENT
  Age: 33 Year
  Sex: Male
  Weight: 91 kg

DRUGS (16)
  1. VENLAFAXINE [Suspect]
     Active Substance: VENLAFAXINE HYDROCHLORIDE
     Indication: Ill-defined disorder
     Dosage: 75 MILLIGRAM, QD (TAKE ONE DAILY)
     Dates: start: 20250613
  2. VENLAFAXINE [Suspect]
     Active Substance: VENLAFAXINE HYDROCHLORIDE
     Dosage: 75 MILLIGRAM, QD (TAKE ONE DAILY)
     Route: 065
     Dates: start: 20250613
  3. VENLAFAXINE [Suspect]
     Active Substance: VENLAFAXINE HYDROCHLORIDE
     Dosage: 75 MILLIGRAM, QD (TAKE ONE DAILY)
     Route: 065
     Dates: start: 20250613
  4. VENLAFAXINE [Suspect]
     Active Substance: VENLAFAXINE HYDROCHLORIDE
     Dosage: 75 MILLIGRAM, QD (TAKE ONE DAILY)
     Dates: start: 20250613
  5. PROMETHAZINE HYDROCHLORIDE [Concomitant]
     Active Substance: PROMETHAZINE HYDROCHLORIDE
     Indication: Ill-defined disorder
     Dosage: UNK UNK, PM (1 OR 2 TO BE TAKEN EACH NIGHT)
     Dates: start: 20250613
  6. PROMETHAZINE HYDROCHLORIDE [Concomitant]
     Active Substance: PROMETHAZINE HYDROCHLORIDE
     Dosage: UNK UNK, PM (1 OR 2 TO BE TAKEN EACH NIGHT)
     Route: 065
     Dates: start: 20250613
  7. PROMETHAZINE HYDROCHLORIDE [Concomitant]
     Active Substance: PROMETHAZINE HYDROCHLORIDE
     Dosage: UNK UNK, PM (1 OR 2 TO BE TAKEN EACH NIGHT)
     Route: 065
     Dates: start: 20250613
  8. PROMETHAZINE HYDROCHLORIDE [Concomitant]
     Active Substance: PROMETHAZINE HYDROCHLORIDE
     Dosage: UNK UNK, PM (1 OR 2 TO BE TAKEN EACH NIGHT)
     Dates: start: 20250613
  9. MIRTAZAPINE [Concomitant]
     Active Substance: MIRTAZAPINE
     Indication: Ill-defined disorder
     Dosage: 1 DOSAGE FORM, PM(1 AT BEDTIME)
     Dates: start: 20230619
  10. MIRTAZAPINE [Concomitant]
     Active Substance: MIRTAZAPINE
     Dosage: 1 DOSAGE FORM, PM(1 AT BEDTIME)
     Route: 065
     Dates: start: 20230619
  11. MIRTAZAPINE [Concomitant]
     Active Substance: MIRTAZAPINE
     Dosage: 1 DOSAGE FORM, PM(1 AT BEDTIME)
     Route: 065
     Dates: start: 20230619
  12. MIRTAZAPINE [Concomitant]
     Active Substance: MIRTAZAPINE
     Dosage: 1 DOSAGE FORM, PM(1 AT BEDTIME)
     Dates: start: 20230619
  13. SERTRALINE [Concomitant]
     Active Substance: SERTRALINE HYDROCHLORIDE
     Indication: Ill-defined disorder
     Dosage: 2 DOSAGE FORM, QD (2 DAILY)
     Dates: start: 20230906, end: 20250618
  14. SERTRALINE [Concomitant]
     Active Substance: SERTRALINE HYDROCHLORIDE
     Dosage: 2 DOSAGE FORM, QD (2 DAILY)
     Route: 065
     Dates: start: 20230906, end: 20250618
  15. SERTRALINE [Concomitant]
     Active Substance: SERTRALINE HYDROCHLORIDE
     Dosage: 2 DOSAGE FORM, QD (2 DAILY)
     Route: 065
     Dates: start: 20230906, end: 20250618
  16. SERTRALINE [Concomitant]
     Active Substance: SERTRALINE HYDROCHLORIDE
     Dosage: 2 DOSAGE FORM, QD (2 DAILY)
     Dates: start: 20230906, end: 20250618

REACTIONS (1)
  - Lip swelling [Recovering/Resolving]
